FAERS Safety Report 13375813 (Version 2)
Quarter: 2017Q2

REPORT INFORMATION
  Report Type: Spontaneous
  Country: US (occurrence: US)
  Receive Date: 20170328
  Receipt Date: 20170411
  Transmission Date: 20170830
  Serious: Yes (Hospitalization, Other)
  Sender: FDA-Public Use
  Company Number: US-AUROBINDO-AUR-APL-2017-31261

PATIENT
  Age: 22 Year
  Sex: Male

DRUGS (3)
  1. PREDNISONE. [Suspect]
     Active Substance: PREDNISONE
     Indication: IMMUNE RECONSTITUTION INFLAMMATORY SYNDROME
     Route: 048
  2. LEVOFLOXACIN. [Concomitant]
     Active Substance: LEVOFLOXACIN
     Indication: PRODUCT USED FOR UNKNOWN INDICATION
  3. FLUCONAZOLE. [Concomitant]
     Active Substance: FLUCONAZOLE
     Indication: PRODUCT USED FOR UNKNOWN INDICATION
     Route: 065

REACTIONS (9)
  - Hypoxia [Recovering/Resolving]
  - Dyspnoea [Recovering/Resolving]
  - Hypokalaemia [Recovering/Resolving]
  - Night sweats [Recovering/Resolving]
  - Normochromic normocytic anaemia [Recovering/Resolving]
  - Fatigue [Recovering/Resolving]
  - Kaposi^s sarcoma [Recovering/Resolving]
  - Cough [Recovering/Resolving]
  - Decreased appetite [Recovering/Resolving]
